FAERS Safety Report 12893739 (Version 1)
Quarter: 2016Q4

REPORT INFORMATION
  Report Type: Spontaneous
  Country: US (occurrence: US)
  Receive Date: 20161028
  Receipt Date: 20161028
  Transmission Date: 20170207
  Serious: Yes (Death)
  Sender: FDA-Public Use
  Company Number: US-TURING PHARMACEUTICALS-2016TNG00049

PATIENT
  Sex: Female

DRUGS (1)
  1. DARAPRIM [Suspect]
     Active Substance: PYRIMETHAMINE
     Indication: TOXOPLASMOSIS
     Dosage: 75 MG, 1X/DAY
     Route: 048
     Dates: start: 20151104, end: 20161010

REACTIONS (1)
  - Death [Fatal]
